FAERS Safety Report 25081464 (Version 1)
Quarter: 2025Q1

REPORT INFORMATION
  Report Type: Spontaneous
  Country: US (occurrence: US)
  Receive Date: 20250316
  Receipt Date: 20250316
  Transmission Date: 20250409
  Serious: Yes (Death, Other)
  Sender: SANOFI AVENTIS
  Company Number: US-SA-2025SA066754

PATIENT
  Age: 84 Year
  Sex: Male

DRUGS (6)
  1. DUPIXENT [Suspect]
     Active Substance: DUPILUMAB
     Indication: Dermatitis atopic
     Route: 058
     Dates: start: 20230630, end: 20230630
  2. DUPIXENT [Suspect]
     Active Substance: DUPILUMAB
     Dosage: 300 MG, QOW
     Route: 058
     Dates: start: 202307
  3. BETAMETHASONE [Concomitant]
     Active Substance: BETAMETHASONE
     Indication: Eczema
     Route: 061
  4. FEXOFENADINE HYDROCHLORIDE [Concomitant]
     Active Substance: FEXOFENADINE HYDROCHLORIDE
  5. TRIAMCINOLONE [Concomitant]
     Active Substance: TRIAMCINOLONE
     Indication: Eczema
     Route: 061
  6. MONTELUKAST [Concomitant]
     Active Substance: MONTELUKAST
     Indication: Asthma

REACTIONS (4)
  - Death [Fatal]
  - COVID-19 [Recovered/Resolved]
  - Dermatitis atopic [Unknown]
  - Drug ineffective [Unknown]

NARRATIVE: CASE EVENT DATE: 20240701
